FAERS Safety Report 15368377 (Version 2)
Quarter: 2019Q2

REPORT INFORMATION
  Report Type: Spontaneous
  Country: US (occurrence: US)
  Receive Date: 20180910
  Receipt Date: 20190524
  Transmission Date: 20190711
  Serious: No
  Sender: FDA-Public Use
  Company Number: US-009507513-1808USA011192

PATIENT
  Age: 34 Year
  Sex: Female
  Weight: 99.77 kg

DRUGS (1)
  1. NEXPLANON [Suspect]
     Active Substance: ETONOGESTREL
     Dosage: 1 ROD, 68 MILLIGRAM, 3 YEARS
     Route: 059
     Dates: start: 20180702, end: 20180730

REACTIONS (4)
  - Device expulsion [Recovered/Resolved]
  - Complication associated with device [Recovered/Resolved]
  - Implant site erythema [Unknown]
  - Implant site pruritus [Unknown]

NARRATIVE: CASE EVENT DATE: 2018
